FAERS Safety Report 10224978 (Version 1)
Quarter: 2014Q2

REPORT INFORMATION
  Report Type: Report from Study
  Country: SE (occurrence: SE)
  Receive Date: 20140609
  Receipt Date: 20140609
  Transmission Date: 20141212
  Serious: Yes (Life-Threatening, Other)
  Sender: FDA-Public Use
  Company Number: SE-AMGEN INC.-SWECT2014042633

PATIENT
  Age: 61 Year
  Sex: Female

DRUGS (3)
  1. ETANERCEPT [Suspect]
     Indication: PRODUCT USED FOR UNKNOWN INDICATION
     Dosage: 50 MG, QWK
     Route: 058
     Dates: start: 20030811, end: 20100218
  2. REMICADE [Concomitant]
     Dosage: 300 MG EVERY 8 WEEK
     Dates: start: 20010828, end: 20020423
  3. HUMIRA [Concomitant]
     Dosage: 40 MG, BI-WEEKLY
     Dates: start: 20100218, end: 20110118

REACTIONS (1)
  - Breast cancer [Recovered/Resolved]
